FAERS Safety Report 15775489 (Version 1)
Quarter: 2018Q4

REPORT INFORMATION
  Report Type: Spontaneous
  Country: US (occurrence: US)
  Receive Date: 20181231
  Receipt Date: 20181231
  Transmission Date: 20190205
  Serious: No
  Sender: FDA-Public Use
  Company Number: US-DRREDDYS-USA/USA/17/0095326

PATIENT
  Age: 55 Year
  Sex: Male
  Weight: 48.5 kg

DRUGS (3)
  1. CHANTIX [Suspect]
     Active Substance: VARENICLINE TARTRATE
     Indication: PRODUCT USED FOR UNKNOWN INDICATION
     Route: 065
     Dates: end: 20171218
  2. HABITROL [Suspect]
     Active Substance: NICOTINE
     Indication: PRODUCT USED FOR UNKNOWN INDICATION
     Route: 062
  3. HABITROL [Suspect]
     Active Substance: NICOTINE
     Route: 062
     Dates: start: 20171218

REACTIONS (4)
  - Drug effect increased [Unknown]
  - Incorrect dose administered [Unknown]
  - Palpitations [Unknown]
  - Incorrect product administration duration [Unknown]
